FAERS Safety Report 22738014 (Version 2)
Quarter: 2023Q4

REPORT INFORMATION
  Report Type: Spontaneous
  Country: US (occurrence: US)
  Receive Date: 20230721
  Receipt Date: 20231013
  Transmission Date: 20240109
  Serious: Yes (Death, Other)
  Sender: FDA-Public Use
  Company Number: US-SUN PHARMACEUTICAL INDUSTRIES LTD-2023R1-400607

PATIENT
  Age: 27 Year
  Sex: Male

DRUGS (2)
  1. VENLAFAXINE [Suspect]
     Active Substance: VENLAFAXINE HYDROCHLORIDE
     Indication: Product used for unknown indication
     Dosage: UNK
     Route: 065
  2. ISOTONITAZENE [Suspect]
     Active Substance: ISOTONITAZENE
     Indication: Product used for unknown indication
     Dosage: UNK (1.5 NG/ML)
     Route: 065

REACTIONS (1)
  - Toxicity to various agents [Fatal]
